FAERS Safety Report 4603254-1 (Version None)
Quarter: 2005Q1

REPORT INFORMATION
  Report Type: 
  Country: None (occurrence: None)
  Receive Date: 20050223
  Receipt Date: 20040421
  Transmission Date: 20050727
  Serious: Yes (Other)
  Sender: FDA-Public Use
  Company Number: PHEH2004US04507

PATIENT
  Sex: Female

DRUGS (2)
  1. DIOVAN [Suspect]
  2. CYCLOSPORINE [Suspect]

REACTIONS (1)
  - RENAL IMPAIRMENT [None]
